FAERS Safety Report 4332910-8 (Version None)
Quarter: 2004Q1

REPORT INFORMATION
  Report Type: 
  Country: None (occurrence: None)
  Receive Date: 20040330
  Receipt Date: 20040318
  Transmission Date: 20041129
  Serious: Yes (Hospitalization)
  Sender: FDA-Public Use
  Company Number: US-JNJFOC-20040200460

PATIENT
  Age: 33 Year
  Sex: Female
  Weight: 74.8435 kg

DRUGS (6)
  1. INFLIXIMAB (INFLIXIMAB, RECOMBINANT) LYOPHILIZED POWDER [Suspect]
     Indication: CROHN'S DISEASE
     Dosage: 5 MG/KG, INTRAVENOUS
     Route: 042
     Dates: start: 20030825
  2. INFLIXMAB [Suspect]
     Dates: start: 20040329
  3. AZATHIOPRINE [Concomitant]
  4. ANTIBIOTICS (ANTIBIOTICS) [Concomitant]
  5. NARCOTIC ANALGESICS (ANALGESICS) [Concomitant]
  6. ANTIDEPRESSANTS (ANTIDEPRESSATS) [Concomitant]

REACTIONS (4)
  - ABDOMINAL ADHESIONS [None]
  - ABDOMINAL PAIN [None]
  - NAUSEA [None]
  - VOMITING [None]
